FAERS Safety Report 22149609 (Version 2)
Quarter: 2023Q2

REPORT INFORMATION
  Report Type: Spontaneous
  Country: CN (occurrence: CN)
  Receive Date: 20230329
  Receipt Date: 20230414
  Transmission Date: 20230722
  Serious: Yes (Other)
  Sender: FDA-Public Use
  Company Number: CN-NOVOPROD-1041439

PATIENT
  Age: 54 Year
  Sex: Female
  Weight: 70 kg

DRUGS (2)
  1. NOVOLIN R [Suspect]
     Active Substance: INSULIN HUMAN
     Indication: Type 2 diabetes mellitus
     Dosage: 26 IU, BID
     Dates: start: 2008
  2. GLIMEPIRIDE [Concomitant]
     Active Substance: GLIMEPIRIDE
     Indication: Type 2 diabetes mellitus
     Dosage: 2 TABLETS IN THE MORNING AND 2 TABLETS IN THE EVENING
     Route: 048
     Dates: start: 2021

REACTIONS (3)
  - Cervix carcinoma [Recovered/Resolved]
  - Vision blurred [Not Recovered/Not Resolved]
  - Blood glucose increased [Not Recovered/Not Resolved]

NARRATIVE: CASE EVENT DATE: 20190101
